FAERS Safety Report 12233841 (Version 1)
Quarter: 2016Q2

REPORT INFORMATION
  Report Type: Spontaneous
  Country: US (occurrence: None)
  Receive Date: 20160401
  Receipt Date: 20160401
  Transmission Date: 20160815
  Serious: No
  Sender: FDA-Public Use
  Company Number: None

PATIENT
  Sex: Male

DRUGS (1)
  1. NOVOLIN [Suspect]
     Active Substance: INSULIN HUMAN

REACTIONS (4)
  - Exercise tolerance decreased [None]
  - Pain [None]
  - Gastric operation [None]
  - Knee operation [None]
